FAERS Safety Report 5107138-4 (Version None)
Quarter: 2006Q3

REPORT INFORMATION
  Report Type: 
  Country: None (occurrence: None)
  Receive Date: 20060913
  Receipt Date: 20060823
  Transmission Date: 20061208
  Serious: Yes (Hospitalization)
  Sender: FDA-Public Use
  Company Number: US200608005320

PATIENT
  Age: 83 Year
  Sex: Female

DRUGS (13)
  1. FORTEO [Suspect]
     Indication: OSTEOPOROSIS
     Dates: start: 20051001
  2. FORTEO [Concomitant]
  3. COREG [Concomitant]
  4. ATACAND [Concomitant]
  5. DILTIAZEM HCL [Concomitant]
  6. POTASSIUM [Concomitant]
  7. PLAQUENIL [Concomitant]
  8. TORSEMIDE [Concomitant]
  9. COUMADIN [Concomitant]
  10. DISALCID (SALSALATE) [Concomitant]
  11. SYNTHROID [Concomitant]
  12. PREVACID [Concomitant]
  13. CALCIUM GLUCONATE [Concomitant]

REACTIONS (3)
  - FALL [None]
  - LIMB CRUSHING INJURY [None]
  - PHARMACEUTICAL PRODUCT COMPLAINT [None]
